FAERS Safety Report 16420374 (Version 4)
Quarter: 2019Q2

REPORT INFORMATION
  Report Type: Spontaneous
  Country: IT (occurrence: IT)
  Receive Date: 20190612
  Receipt Date: 20190628
  Transmission Date: 20190711
  Serious: Yes (Death, Hospitalization, Other)
  Sender: FDA-Public Use
  Company Number: IT-SA-2019SA154389

PATIENT
  Age: 39 Year
  Sex: Female

DRUGS (2)
  1. LEMTRADA [Suspect]
     Active Substance: ALEMTUZUMAB
     Dosage: UNK UNK, UNK
     Route: 041
     Dates: start: 2016
  2. LEMTRADA [Suspect]
     Active Substance: ALEMTUZUMAB
     Indication: MULTIPLE SCLEROSIS
     Dosage: UNK UNK, UNK
     Route: 041
     Dates: start: 201711, end: 201711

REACTIONS (35)
  - Pyrexia [Fatal]
  - Respiratory failure [Unknown]
  - Pyrexia [Unknown]
  - Movement disorder [Unknown]
  - Unevaluable event [Unknown]
  - Blood triglycerides increased [Fatal]
  - Visual impairment [Unknown]
  - Fatigue [Unknown]
  - Asthenia [Fatal]
  - Multiple sclerosis relapse [Unknown]
  - Mean cell haemoglobin decreased [Unknown]
  - Neutrophil count increased [Unknown]
  - White blood cell count increased [Unknown]
  - Lymphocyte percentage decreased [Unknown]
  - Haemophagocytic lymphohistiocytosis [Fatal]
  - Haemoglobin decreased [Fatal]
  - Blood sodium decreased [Unknown]
  - Platelet count decreased [Unknown]
  - Intentional product use issue [Unknown]
  - Epstein-Barr virus test positive [Unknown]
  - Urine abnormality [Unknown]
  - Thrombocytopenia [Fatal]
  - Lymphadenopathy [Fatal]
  - Haemolysis [Fatal]
  - Biopsy bone marrow [Unknown]
  - Mean cell volume abnormal [Unknown]
  - Abdominal pain [Unknown]
  - Hepatosplenomegaly [Fatal]
  - Serum ferritin increased [Fatal]
  - C-reactive protein increased [Fatal]
  - Ascites [Fatal]
  - Multiple organ dysfunction syndrome [Unknown]
  - Balance disorder [Unknown]
  - Neutrophil percentage increased [Unknown]
  - Lymphocyte count abnormal [Unknown]

NARRATIVE: CASE EVENT DATE: 201806
